FAERS Safety Report 4598927-3 (Version None)
Quarter: 2005Q1

REPORT INFORMATION
  Report Type: 
  Country: None (occurrence: None)
  Receive Date: 20050302
  Receipt Date: 20050217
  Transmission Date: 20050727
  Serious: Yes (Other)
  Sender: FDA-Public Use
  Company Number: HQWYE195516JUL04

PATIENT
  Age: 64 Year
  Sex: Female
  Weight: 128.94 kg

DRUGS (1)
  1. PREMARIN [Suspect]
     Indication: HORMONE REPLACEMENT THERAPY
     Dosage: ORAL
     Route: 048
     Dates: start: 19870101, end: 20010101

REACTIONS (3)
  - BREAST CANCER METASTATIC [None]
  - DIABETES MELLITUS [None]
  - SPINAL OSTEOARTHRITIS [None]
